FAERS Safety Report 11510006 (Version 1)
Quarter: 2015Q3

REPORT INFORMATION
  Report Type: Spontaneous
  Country: US (occurrence: US)
  Receive Date: 20150915
  Receipt Date: 20150915
  Transmission Date: 20151125
  Serious: No
  Sender: FDA-Public Use
  Company Number: US-JNJFOC-20141220025

PATIENT
  Age: 20 Month
  Sex: Male
  Weight: 10.43 kg

DRUGS (2)
  1. MOTRIN INFANTS [Suspect]
     Active Substance: IBUPROFEN
     Indication: PYREXIA
     Route: 048
     Dates: start: 20141226
  2. MOTRIN INFANTS [Suspect]
     Active Substance: IBUPROFEN
     Route: 048

REACTIONS (2)
  - Expired product administered [Unknown]
  - Medication error [Unknown]
